FAERS Safety Report 13663898 (Version 1)
Quarter: 2017Q2

REPORT INFORMATION
  Report Type: Spontaneous
  Country: JP (occurrence: JP)
  Receive Date: 20170619
  Receipt Date: 20170619
  Transmission Date: 20170830
  Serious: Yes (Hospitalization)
  Sender: FDA-Public Use
  Company Number: JP-ASTRAZENECA-2017SE63523

PATIENT
  Age: 52 Year
  Sex: Female

DRUGS (3)
  1. ONGLYZA [Suspect]
     Active Substance: SAXAGLIPTIN HYDROCHLORIDE
     Indication: TYPE 2 DIABETES MELLITUS
     Dosage: 145.0MG ONCE/SINGLE ADMINISTRATION
     Route: 048
     Dates: start: 201607
  2. INSULIN DEGLUDEC (GENETICAL RECOMBINATION) [Concomitant]
     Dosage: 900.0IU ONCE/SINGLE ADMINISTRATION
     Route: 058
     Dates: start: 201607
  3. METFORMIN HYDROCHLORIDE. [Concomitant]
     Active Substance: METFORMIN HYDROCHLORIDE
     Dosage: 68.0DF ONCE/SINGLE ADMINISTRATION
     Dates: start: 201607

REACTIONS (1)
  - Suicide attempt [Unknown]

NARRATIVE: CASE EVENT DATE: 201607
